FAERS Safety Report 10498053 (Version 2)
Quarter: 2014Q4

REPORT INFORMATION
  Report Type: Spontaneous
  Country: FR (occurrence: None)
  Receive Date: 20141002
  Receipt Date: 20141229
  Transmission Date: 20150528
  Serious: Yes (Other)
  Sender: FDA-Public Use
  Company Number: 2014MPI01219

PATIENT
  Age: 45 Year
  Sex: Male

DRUGS (2)
  1. ADCETRIS [Suspect]
     Active Substance: BRENTUXIMAB VEDOTIN
     Indication: HODGKIN^S DISEASE
     Route: 042
     Dates: start: 2012
  2. LEVOTHYROXIN (LEVOTHYROXINE SODIUM) [Concomitant]

REACTIONS (2)
  - Radiation fibrosis - lung [None]
  - Condition aggravated [None]

NARRATIVE: CASE EVENT DATE: 2014
